FAERS Safety Report 4871902-7 (Version None)
Quarter: 2006Q1

REPORT INFORMATION
  Report Type: 
  Country: None (occurrence: None)
  Receive Date: 20060104
  Receipt Date: 20051227
  Transmission Date: 20060701
  Serious: Yes (Other)
  Sender: FDA-Public Use
  Company Number: 2005AP06618

PATIENT
  Age: 51 Year
  Sex: Female

DRUGS (4)
  1. OMEPRAL [Suspect]
     Indication: REFLUX OESOPHAGITIS
     Route: 048
     Dates: start: 20051213, end: 20051222
  2. OLMETEC [Concomitant]
     Route: 048
     Dates: start: 20050624
  3. GLUCOBAY [Concomitant]
     Route: 048
     Dates: start: 20050930
  4. LIVALO [Concomitant]
     Route: 048
     Dates: start: 20050930

REACTIONS (5)
  - ERYTHEMA [None]
  - INDURATION [None]
  - PRURITUS [None]
  - PURPURA [None]
  - TENDERNESS [None]
